FAERS Safety Report 6889416-1 (Version None)
Quarter: 2010Q3

REPORT INFORMATION
  Report Type: 
  Country: None (occurrence: None)
  Receive Date: 20100730
  Receipt Date: 20080219
  Transmission Date: 20110219
  Serious: No
  Sender: FDA-Public Use
  Company Number: US-PFIZER INC-2007108429

PATIENT
  Sex: Male
  Weight: 100 kg

DRUGS (2)
  1. LIPITOR [Suspect]
     Indication: BLOOD CHOLESTEROL INCREASED
  2. PROZAC [Concomitant]
     Indication: DEPRESSION

REACTIONS (3)
  - FEELING ABNORMAL [None]
  - MUSCULAR WEAKNESS [None]
  - MYALGIA [None]
